FAERS Safety Report 15021033 (Version 12)
Quarter: 2020Q4

REPORT INFORMATION
  Report Type: Report from Study
  Country: JP (occurrence: JP)
  Receive Date: 20180618
  Receipt Date: 20201022
  Transmission Date: 20210113
  Serious: Yes (Death, Hospitalization)
  Sender: FDA-Public Use
  Company Number: JP-EISAI MEDICAL RESEARCH-EC-2018-041271

PATIENT
  Age: 67 Year
  Sex: Female
  Weight: 39 kg

DRUGS (32)
  1. PREDNISOLONE. [Concomitant]
     Active Substance: PREDNISOLONE
  2. LENVATINIB [Suspect]
     Active Substance: LENVATINIB
     Route: 048
     Dates: start: 20180706, end: 20180822
  3. PEMBROLIZUMAB. [Suspect]
     Active Substance: PEMBROLIZUMAB
     Indication: CLEAR CELL RENAL CELL CARCINOMA
     Route: 041
     Dates: start: 20180419, end: 20180531
  4. PIOGLITAZONE. [Concomitant]
     Active Substance: PIOGLITAZONE
  5. KERATINAMIN [Concomitant]
     Active Substance: UREA
  6. CALONAL [Concomitant]
     Active Substance: ACETAMINOPHEN
  7. JANUVIA [Concomitant]
     Active Substance: SITAGLIPTIN PHOSPHATE
  8. LENVATINIB [Suspect]
     Active Substance: LENVATINIB
     Indication: CLEAR CELL RENAL CELL CARCINOMA
     Route: 048
     Dates: start: 20180419, end: 20180428
  9. ASPARA-CA [Concomitant]
     Active Substance: CALCIUM ASPARTATE
  10. ETODOLAC. [Concomitant]
     Active Substance: ETODOLAC
  11. OXINORM [Concomitant]
  12. LAC-B [Concomitant]
     Active Substance: BIFIDOBACTERIUM SPP.
  13. RANMARK [Concomitant]
     Active Substance: DENOSUMAB
  14. MOHRUS TAPE [Concomitant]
     Active Substance: KETOPROFEN
  15. LENVATINIB [Suspect]
     Active Substance: LENVATINIB
     Route: 048
     Dates: start: 20180524, end: 20180610
  16. OXYCONTIN TR [Concomitant]
     Active Substance: OXYCODONE HYDROCHLORIDE
  17. ALFACALCIDOL [Concomitant]
     Active Substance: ALFACALCIDOL
  18. AMLODIPINE [Concomitant]
     Active Substance: AMLODIPINE BESYLATE
  19. ALBUMIN TANNATE [Concomitant]
     Active Substance: ALBUMIN BOVINE\TANNIC ACID
  20. DENOTAS [Concomitant]
     Active Substance: CALCIUM CARBONATE\CHOLECALCIFEROL\MAGNESIUM CARBONATE
  21. MAGNESIUM OXIDE. [Concomitant]
     Active Substance: MAGNESIUM OXIDE
  22. GLIMEPIRIDE. [Concomitant]
     Active Substance: GLIMEPIRIDE
  23. LANSOPRAZOLE. [Concomitant]
     Active Substance: LANSOPRAZOLE
  24. AZUNOL GARGLE [Concomitant]
  25. NOVAMIN [Concomitant]
  26. DAIPHEN [Concomitant]
     Active Substance: SULFAMETHOXAZOLE\TRIMETHOPRIM
  27. HIRUDOID [Concomitant]
     Active Substance: GLYCOSAMINOGLYCANS
  28. LENVATINIB [Suspect]
     Active Substance: LENVATINIB
     Route: 048
     Dates: start: 20180507, end: 20180516
  29. THYRADIN S [Concomitant]
     Active Substance: LEVOTHYROXINE SODIUM
  30. KETOPROFEN. [Concomitant]
     Active Substance: KETOPROFEN
  31. ZOLPIDEM [Concomitant]
     Active Substance: ZOLPIDEM TARTRATE
  32. SHIMBUTO [Concomitant]
     Active Substance: HERBALS

REACTIONS (2)
  - Cancer pain [Recovering/Resolving]
  - Enterocolitis [Not Recovered/Not Resolved]

NARRATIVE: CASE EVENT DATE: 20180611
